FAERS Safety Report 6872507-9 (Version None)
Quarter: 2010Q3

REPORT INFORMATION
  Report Type: 
  Country: None (occurrence: None)
  Receive Date: 20100723
  Receipt Date: 20090417
  Transmission Date: 20110219
  Serious: No
  Sender: FDA-Public Use
  Company Number: US-PFIZER INC-2008084263

PATIENT
  Sex: Female
  Weight: 141 kg

DRUGS (6)
  1. CHANTIX [Suspect]
     Dosage: UNK
     Dates: start: 20080717
  2. HERBAL NOS/MINERALS NOS [Concomitant]
  3. ZESTRIL [Concomitant]
     Dosage: UNK
  4. COLACE [Concomitant]
  5. LASIX [Concomitant]
  6. CITRUCEL [Concomitant]
     Dosage: UNK

REACTIONS (6)
  - AGITATION [None]
  - CONSTIPATION [None]
  - FEELING ABNORMAL [None]
  - INSOMNIA [None]
  - IRRITABILITY [None]
  - URINARY TRACT INFECTION [None]
